APPROVED DRUG PRODUCT: PROPULSID
Active Ingredient: CISAPRIDE MONOHYDRATE
Strength: EQ 1MG BASE/ML
Dosage Form/Route: SUSPENSION;ORAL
Application: N020398 | Product #001
Applicant: JANSSEN PHARMACEUTICALS INC
Approved: Sep 15, 1995 | RLD: No | RS: No | Type: DISCN